FAERS Safety Report 6896360-2 (Version None)
Quarter: 2010Q3

REPORT INFORMATION
  Report Type: 
  Country: None (occurrence: None)
  Receive Date: 20100802
  Receipt Date: 20090114
  Transmission Date: 20110219
  Serious: Yes (Other)
  Sender: FDA-Public Use
  Company Number: US-PFIZER INC-2009156858

PATIENT
  Sex: Female
  Weight: 68.038 kg

DRUGS (4)
  1. INSPRA [Suspect]
     Indication: HYPERTENSION
     Dates: start: 20081226, end: 20090113
  2. TOPROL-XL [Concomitant]
     Indication: HYPERTENSION
  3. LASIX [Concomitant]
     Indication: HYPERTENSION
  4. CLONIDINE [Concomitant]
     Indication: HYPERTENSION

REACTIONS (4)
  - BLOOD PRESSURE INADEQUATELY CONTROLLED [None]
  - FLUID RETENTION [None]
  - HEADACHE [None]
  - WEIGHT INCREASED [None]
